FAERS Safety Report 8145067-2 (Version None)
Quarter: 2012Q1

REPORT INFORMATION
  Report Type: 
  Country: None (occurrence: None)
  Receive Date: 20120217
  Receipt Date: 20120208
  Transmission Date: 20120608
  Serious: Yes (Hospitalization)
  Sender: FDA-Public Use
  Company Number: PHHY2009CH49927

PATIENT
  Age: 88 Year
  Sex: Female

DRUGS (7)
  1. PANTOPRAZOLE [Concomitant]
     Dosage: 1 DF, QD
  2. ACETAMINOPHEN [Concomitant]
     Dosage: 4 G, PER DAY
  3. TORSEMIDE [Concomitant]
     Dosage: 10 MG, DAILY
  4. BISOPROLOL FUMARATE [Concomitant]
     Dosage: 5 MG, DAILY
  5. ACTONEL [Concomitant]
     Dosage: 35 MG, PER WEEK
  6. VOLTAREN [Suspect]
     Indication: PAIN
     Dosage: 50 MG, PRN
     Dates: start: 20090905, end: 20090910
  7. MARCOUMAR [Interacting]
     Indication: ATRIAL FLUTTER
     Dosage: UNK
     Dates: end: 20090910

REACTIONS (9)
  - HAEMATOMA [None]
  - OEDEMA PERIPHERAL [None]
  - FALL [None]
  - RENAL FAILURE CHRONIC [None]
  - INTERNATIONAL NORMALISED RATIO INCREASED [None]
  - DRUG INTERACTION [None]
  - CARDIAC FAILURE [None]
  - EJECTION FRACTION DECREASED [None]
  - HAEMORRHAGIC ANAEMIA [None]
